FAERS Safety Report 5161118-1 (Version None)
Quarter: 2006Q4

REPORT INFORMATION
  Report Type: 
  Country: None (occurrence: None)
  Receive Date: 20061121
  Receipt Date: 20061103
  Transmission Date: 20070319
  Serious: Yes (Hospitalization)
  Sender: FDA-Public Use
  Company Number: 2006SP005610

PATIENT
  Age: 47 Year
  Sex: Male

DRUGS (6)
  1. PEG-INTRON [Suspect]
     Indication: HEPATITIS C
     Dosage: 1.5 MCG/KG;QW;SC
     Route: 058
     Dates: start: 20061004
  2. REBETOL [Suspect]
     Indication: HEPATITIS C
     Dosage: 1200 MG;QD;PO
     Route: 048
     Dates: start: 20061004
  3. XATRAL                                                          /00975 [Concomitant]
  4. SEROPRAM                                                      /0058260 [Concomitant]
  5. CITALOPRAM HYDROBROMIDE [Concomitant]
  6. ALFUZOSIN HYDROCHLORIDE [Concomitant]

REACTIONS (2)
  - ABDOMINAL PAIN [None]
  - PERICARDITIS [None]
